FAERS Safety Report 17135627 (Version 3)
Quarter: 2020Q1

REPORT INFORMATION
  Report Type: Report from Study
  Country: PH (occurrence: PH)
  Receive Date: 20191210
  Receipt Date: 20200207
  Transmission Date: 20200409
  Serious: Yes (Death, Hospitalization, Other)
  Sender: FDA-Public Use
  Company Number: PH-PFIZER INC-2019527354

PATIENT
  Age: 49 Year
  Sex: Female

DRUGS (2)
  1. HYDROXYUREA. [Concomitant]
     Active Substance: HYDROXYUREA
     Indication: WHITE BLOOD CELL COUNT INCREASED
     Dosage: 500 MG, 1X/DAY
     Route: 048
  2. BOSULIF [Suspect]
     Active Substance: BOSUTINIB MONOHYDRATE
     Indication: CHRONIC MYELOID LEUKAEMIA
     Dosage: 500 MG, UNK

REACTIONS (10)
  - Gingival disorder [Unknown]
  - Haemorrhage intracranial [Fatal]
  - Gait disturbance [Unknown]
  - Neoplasm progression [Fatal]
  - Tooth infection [Fatal]
  - Respiratory failure [Fatal]
  - Eye infection [Fatal]
  - Swelling [Unknown]
  - Speech disorder [Unknown]
  - Periorbital cellulitis [Unknown]

NARRATIVE: CASE EVENT DATE: 20191015
